FAERS Safety Report 4889760-3 (Version None)
Quarter: 2006Q1

REPORT INFORMATION
  Report Type: 
  Country: None (occurrence: None)
  Receive Date: 20060120
  Receipt Date: 20060106
  Transmission Date: 20060701
  Serious: Yes (Death)
  Sender: FDA-Public Use
  Company Number: 8014147

PATIENT
  Age: 58 Year
  Sex: Female
  Weight: 101.36 kg

DRUGS (8)
  1. LORTAB [Suspect]
     Indication: BACK PAIN
     Dosage: PRN PO
     Route: 048
     Dates: start: 20050629
  2. CARISOPRODOL [Suspect]
     Indication: BACK PAIN
     Dosage: 350 MG 3/D
     Dates: start: 20050606
  3. FEXOFENADINE HCL [Suspect]
     Indication: SEASONAL ALLERGY
     Dosage: 180  MG/D
     Dates: start: 20050801
  4. DIPHENHYDRAMINE [Suspect]
     Indication: SEASONAL ALLERGY
     Dosage: 25 MG PRN PO
     Route: 048
     Dates: start: 20041111
  5. ASPIRIN [Suspect]
     Indication: CARDIAC DISORDER
     Dosage: 325 MG 3/W
     Dates: start: 20040811
  6. ASPIRIN [Suspect]
     Indication: PROPHYLAXIS
     Dosage: 325 MG 3/W
     Dates: start: 20040811
  7. SUMATRIPTAN SUCCINATE [Suspect]
     Indication: MIGRAINE
     Dosage: 50 MG/D
     Dates: start: 19961111
  8. EXCEDRIN (MIGRAINE) [Suspect]
     Indication: MIGRAINE
     Dosage: 250 MG
     Dates: start: 19851111

REACTIONS (6)
  - GASTROINTESTINAL DISORDER [None]
  - GASTROINTESTINAL NECROSIS [None]
  - MUSCLE SPASMS [None]
  - NASOPHARYNGITIS [None]
  - NECK PAIN [None]
  - PROCEDURAL COMPLICATION [None]
